FAERS Safety Report 18349565 (Version 1)
Quarter: 2020Q4

REPORT INFORMATION
  Report Type: Spontaneous
  Country: US (occurrence: US)
  Receive Date: 20201006
  Receipt Date: 20201006
  Transmission Date: 20210114
  Serious: No
  Sender: FDA-Public Use
  Company Number: None

PATIENT
  Age: 69 Year
  Sex: Female
  Weight: 70.9 kg

DRUGS (13)
  1. AZITHROMYCIN ANHYDROUS. [Concomitant]
     Active Substance: AZITHROMYCIN ANHYDROUS
     Dates: start: 20200930, end: 20201002
  2. CARVEDILOL. [Concomitant]
     Active Substance: CARVEDILOL
     Dates: start: 20200929, end: 20201001
  3. GABAPENTIN. [Concomitant]
     Active Substance: GABAPENTIN
     Dates: start: 20200929, end: 20201003
  4. ASPIRIN. [Concomitant]
     Active Substance: ASPIRIN
     Dates: start: 20200929
  5. LEVOTHYROXINE. [Concomitant]
     Active Substance: LEVOTHYROXINE
     Dates: start: 20201002
  6. REMDESIVIR. [Suspect]
     Active Substance: REMDESIVIR
     Indication: COVID-19
     Route: 041
     Dates: start: 20200929, end: 20201006
  7. GUAIFENESIN ER [Concomitant]
     Active Substance: GUAIFENESIN
     Dates: start: 20200930
  8. NORTRIPTYLINE [Concomitant]
     Active Substance: NORTRIPTYLINE
     Dates: start: 20200929, end: 20201003
  9. ZOLPIDEM TARTRATE. [Concomitant]
     Active Substance: ZOLPIDEM TARTRATE
     Dates: start: 20200920, end: 20201003
  10. SACUBITRIL/VALSARTAN [Concomitant]
     Active Substance: SACUBITRIL\VALSARTAN
     Dates: start: 20200929, end: 20200930
  11. DEXAMETHASONE. [Concomitant]
     Active Substance: DEXAMETHASONE
     Dates: start: 20201001
  12. DOCUSATE [Concomitant]
     Active Substance: DOCUSATE
     Dates: start: 20200929, end: 20201002
  13. SPIRONOLACTONE. [Concomitant]
     Active Substance: SPIRONOLACTONE
     Dates: start: 20200930, end: 20200930

REACTIONS (2)
  - Therapy cessation [None]
  - Alanine aminotransferase increased [None]

NARRATIVE: CASE EVENT DATE: 20201004
